FAERS Safety Report 4509660-8 (Version None)
Quarter: 2004Q4

REPORT INFORMATION
  Report Type: 
  Country: None (occurrence: None)
  Receive Date: 20041124
  Receipt Date: 20040920
  Transmission Date: 20050328
  Serious: Yes (Hospitalization, Other)
  Sender: FDA-Public Use
  Company Number: 200417142US

PATIENT
  Sex: Male
  Weight: 75 kg

DRUGS (6)
  1. LOVENOX [Suspect]
     Indication: HIP ARTHROPLASTY
     Route: 058
     Dates: start: 20040917, end: 20040920
  2. ANTACID TAB [Concomitant]
     Dosage: DOSE: UNK
     Dates: start: 20040914
  3. ANTIEMETICS AND ANTINAUSEANTS [Concomitant]
     Dosage: DOSE: UNK
     Dates: start: 20040915
  4. FERREX                                  /USA/ [Concomitant]
     Route: 048
     Dates: start: 20040916
  5. VICODIN [Concomitant]
     Indication: PAIN
     Dosage: DOSE: UNK
     Route: 048
     Dates: start: 20040917, end: 20041020
  6. OXYCONTIN [Concomitant]
     Indication: PAIN
     Route: 048
     Dates: start: 20040917, end: 20041010

REACTIONS (16)
  - BLOOD IRON DECREASED [None]
  - BODY TEMPERATURE INCREASED [None]
  - BONE CYST [None]
  - CONVULSION [None]
  - COUGH [None]
  - DYSKINESIA [None]
  - EPISTAXIS [None]
  - FALL [None]
  - HAEMOGLOBIN DECREASED [None]
  - LOSS OF CONSCIOUSNESS [None]
  - MUSCLE STRAIN [None]
  - OSTEOLYSIS [None]
  - PROCEDURAL SITE REACTION [None]
  - SYNCOPE [None]
  - SYNOVITIS [None]
  - THROMBOSIS [None]
